FAERS Safety Report 7138605-X (Version None)
Quarter: 2010Q4

REPORT INFORMATION
  Report Type: 
  Country: None (occurrence: None)
  Receive Date: 20101130
  Receipt Date: 20101130
  Transmission Date: 20110411
  Serious: Yes (Life-Threatening, Hospitalization, Disabling)
  Sender: FDA-Public Use
  Company Number: None

PATIENT
  Sex: Male
  Weight: 102.0593 kg

DRUGS (3)
  1. DEPAKENE [Suspect]
     Indication: EPILEPSY
     Dosage: 500MG/10ML
     Dates: start: 20101102
  2. THORAZINE [Suspect]
     Indication: PSYCHOTIC DISORDER
     Dosage: 100 MG/ 1 TAB
     Dates: start: 20101109
  3. DEPAKOTE [Suspect]

REACTIONS (15)
  - ABDOMINAL DISCOMFORT [None]
  - ASTHENIA [None]
  - CHILLS [None]
  - COORDINATION ABNORMAL [None]
  - DEPRESSION [None]
  - DIARRHOEA [None]
  - DIPLOPIA [None]
  - HEADACHE [None]
  - INFLUENZA LIKE ILLNESS [None]
  - OROPHARYNGEAL PAIN [None]
  - PYREXIA [None]
  - SOMNOLENCE [None]
  - TREMOR [None]
  - VISUAL IMPAIRMENT [None]
  - WEIGHT [None]
